FAERS Safety Report 14107661 (Version 2)
Quarter: 2018Q1

REPORT INFORMATION
  Report Type: Not Available
  Country: US (occurrence: US)
  Receive Date: 20171019
  Receipt Date: 20180122
  Transmission Date: 20180508
  Serious: No
  Sender: FDA-Public Use
  Company Number: US-NEUROCRINE BIOSCIENCES INC.-2017NBI00566

PATIENT
  Age: 52 Year
  Sex: Female

DRUGS (14)
  1. INGREZZA [Suspect]
     Active Substance: VALBENAZINE
     Indication: PRODUCT USED FOR UNKNOWN INDICATION
     Route: 048
     Dates: start: 20170726, end: 20170801
  2. ZOCOR [Concomitant]
     Active Substance: SIMVASTATIN
  3. GABAPENTIN. [Concomitant]
     Active Substance: GABAPENTIN
  4. TRILEPTAL [Concomitant]
     Active Substance: OXCARBAZEPINE
  5. SEROQUEL [Concomitant]
     Active Substance: QUETIAPINE FUMARATE
  6. LANTUS [Concomitant]
     Active Substance: INSULIN GLARGINE
  7. ASPIRIN. [Concomitant]
     Active Substance: ASPIRIN
  8. ALBUTEROL. [Concomitant]
     Active Substance: ALBUTEROL
  9. OXYCODONE [Concomitant]
     Active Substance: OXYCODONE
  10. INGREZZA [Suspect]
     Active Substance: VALBENAZINE
     Route: 048
     Dates: start: 20170802
  11. ATIVAN [Concomitant]
     Active Substance: LORAZEPAM
  12. OMEPRAZOLE. [Concomitant]
     Active Substance: OMEPRAZOLE
  13. RANITIDINE. [Concomitant]
     Active Substance: RANITIDINE
  14. COMBIVENT [Concomitant]
     Active Substance: ALBUTEROL SULFATE\IPRATROPIUM BROMIDE

REACTIONS (5)
  - Tremor [Not Recovered/Not Resolved]
  - Anxiety [Not Recovered/Not Resolved]
  - Dyskinesia [Not Recovered/Not Resolved]
  - Muscle tightness [Unknown]
  - Restless legs syndrome [Unknown]

NARRATIVE: CASE EVENT DATE: 20170727
